FAERS Safety Report 9472241 (Version 2)
Quarter: 2013Q3

REPORT INFORMATION
  Report Type: Spontaneous
  Country: US (occurrence: US)
  Receive Date: 20130823
  Receipt Date: 20130823
  Transmission Date: 20140515
  Serious: Yes (Hospitalization)
  Sender: FDA-Public Use
  Company Number: US-GENZYME-FABR-1003410

PATIENT
  Age: 57 Year
  Sex: Female

DRUGS (1)
  1. FABRAZYME [Suspect]
     Indication: FABRY^S DISEASE
     Dosage: 75 MG, Q2W
     Route: 042
     Dates: start: 20031222

REACTIONS (3)
  - Device related infection [Unknown]
  - Pain [Unknown]
  - Chills [Recovered/Resolved]
